FAERS Safety Report 6202928-9 (Version None)
Quarter: 2009Q2

REPORT INFORMATION
  Report Type: 
  Country: None (occurrence: None)
  Receive Date: 20090520
  Receipt Date: 20090506
  Transmission Date: 20091009
  Serious: Yes (Other)
  Sender: FDA-Public Use
  Company Number: MPS1-1000185

PATIENT
  Age: 5 Month
  Sex: Male
  Weight: 10.1 kg

DRUGS (3)
  1. ALDURAZYME [Suspect]
     Indication: MUCOPOLYSACCHARIDOSIS I
     Dosage: 100 U/KG, 1XW, INTRAVENOUS
     Route: 042
     Dates: start: 20081030
  2. HYDROCORITSON (HYDROCORTISONE) [Concomitant]
  3. TEICOPLANIN (TEICOPLANIN) [Concomitant]

REACTIONS (7)
  - BACTERIAL INFECTION [None]
  - CATHETER SEPSIS [None]
  - CENTRAL LINE INFECTION [None]
  - CHILLS [None]
  - FEBRILE CONVULSION [None]
  - HYPERTENSION [None]
  - LIVEDO RETICULARIS [None]
